FAERS Safety Report 9473244 (Version 2)
Quarter: 2013Q3

REPORT INFORMATION
  Report Type: Spontaneous
  Country: US (occurrence: US)
  Receive Date: 20130823
  Receipt Date: 20130823
  Transmission Date: 20140515
  Serious: No
  Sender: FDA-Public Use
  Company Number: US-BRISTOL-MYERS SQUIBB COMPANY-18816785

PATIENT
  Age: 69 Year
  Sex: Male

DRUGS (7)
  1. SPRYCEL (CML) TABS 100 MG [Suspect]
     Indication: LEUKOCYTOSIS
     Dosage: 7MAR-11APR13?16MAR-10APR13:80MG?RESTARTED:18APR13?1DF:1TAB?80MG.DOSE REDUCED.
     Route: 048
     Dates: start: 20130307
  2. SPRYCEL (CML) TABS 100 MG [Suspect]
     Indication: CHRONIC MYELOID LEUKAEMIA
     Dosage: 7MAR-11APR13?16MAR-10APR13:80MG?RESTARTED:18APR13?1DF:1TAB?80MG.DOSE REDUCED.
     Route: 048
     Dates: start: 20130307
  3. HYDROXYUREA [Suspect]
     Dosage: CAP
  4. ASPIRIN [Concomitant]
  5. HYDROCHLOROTHIAZIDE [Concomitant]
     Dosage: TABS?100MG ER
  6. METOPROLOL [Concomitant]
     Dosage: TABS?100MG ER
  7. ALLOPURINOL [Concomitant]
     Dosage: TABS

REACTIONS (9)
  - White blood cell count decreased [Unknown]
  - Anaemia [Recovering/Resolving]
  - Thrombocytopenia [Recovering/Resolving]
  - Dyspnoea [Recovered/Resolved]
  - Fluid overload [Unknown]
  - Peripheral coldness [Unknown]
  - Dizziness [Unknown]
  - Malaise [Unknown]
  - Fatigue [Recovered/Resolved]
